FAERS Safety Report 9647154 (Version 1)
Quarter: 2013Q4

REPORT INFORMATION
  Report Type: Spontaneous
  Country: US (occurrence: None)
  Receive Date: 20131024
  Receipt Date: 20131024
  Transmission Date: 20140711
  Serious: Yes (Other)
  Sender: FDA-Public Use
  Company Number: None

PATIENT
  Age: 21 Year
  Sex: Female
  Weight: 54.43 kg

DRUGS (1)
  1. MONISTAT [Suspect]
     Indication: FUNGAL INFECTION
     Dates: start: 20131015, end: 20131015

REACTIONS (4)
  - Application site pain [None]
  - Application site pain [None]
  - Vaginal laceration [None]
  - Vaginal haemorrhage [None]
